FAERS Safety Report 4996156-2 (Version None)
Quarter: 2006Q2

REPORT INFORMATION
  Report Type: 
  Country: None (occurrence: None)
  Receive Date: 20060504
  Receipt Date: 20060419
  Transmission Date: 20061013
  Serious: Yes (Death)
  Sender: FDA-Public Use
  Company Number: 2006-DE-02000GD

PATIENT
  Age: 6 Year
  Sex: Female

DRUGS (2)
  1. SALBUTAMOL (SALBUTAMOL) [Suspect]
     Indication: ASTHMA
     Dosage: NR (NR, 40 PUFFS PER DAY), IH
     Route: 055
  2. FLUTICASONE PROPIONATE [Concomitant]

REACTIONS (3)
  - ASTHMA [None]
  - CONDITION AGGRAVATED [None]
  - INAPPROPRIATE SCHEDULE OF DRUG ADMINISTRATION [None]
